FAERS Safety Report 16215730 (Version 1)
Quarter: 2019Q2

REPORT INFORMATION
  Report Type: Spontaneous
  Country: AT (occurrence: AT)
  Receive Date: 20190419
  Receipt Date: 20190419
  Transmission Date: 20190711
  Serious: Yes (Death, Life-Threatening, Hospitalization, Other)
  Sender: FDA-Public Use
  Company Number: AT-BAUSCH-BL-2019-011270

PATIENT
  Age: 76 Year
  Sex: Male

DRUGS (28)
  1. PIPERACILLIN/TAZOBACTAM [Concomitant]
     Active Substance: PIPERACILLIN SODIUM\TAZOBACTAM SODIUM
     Indication: ENTEROCOCCAL INFECTION
  2. TEICOPLANIN [Concomitant]
     Active Substance: TEICOPLANIN
     Indication: STAPHYLOCOCCAL INFECTION
  3. CEFEPIME [Concomitant]
     Active Substance: CEFEPIME HYDROCHLORIDE
     Indication: ENTEROCOCCAL INFECTION
  4. LINEZOLID. [Concomitant]
     Active Substance: LINEZOLID
     Indication: ENTEROCOCCAL INFECTION
  5. TACROLIMUS. [Suspect]
     Active Substance: TACROLIMUS
     Indication: IMMUNOSUPPRESSANT DRUG THERAPY
     Dosage: 0.1 MG/KG BODY WEIGHT
     Route: 065
  6. CEFTOLOZANE/TAZOBACTAM [Concomitant]
     Active Substance: CEFTOLOZANE SULFATE\TAZOBACTAM SODIUM
     Indication: STAPHYLOCOCCAL INFECTION
  7. SULFAMETROLE/TRIMETHOPRIM [Concomitant]
     Indication: STAPHYLOCOCCAL INFECTION
  8. ANIDULAFUNGIN [Concomitant]
     Active Substance: ANIDULAFUNGIN
     Indication: PROPHYLAXIS
  9. MEROPENEM. [Concomitant]
     Active Substance: MEROPENEM
     Indication: STAPHYLOCOCCAL INFECTION
  10. PREDNISOLONE. [Suspect]
     Active Substance: PREDNISOLONE
     Dosage: 15 MG/DAY, 50 MG/D-0.6 MG/KG ON POSTOPERATIVE DAY FOLLOWED BY TAPERING
     Route: 065
  11. CEFTOLOZANE/TAZOBACTAM [Concomitant]
     Active Substance: CEFTOLOZANE SULFATE\TAZOBACTAM SODIUM
     Indication: ENTEROCOCCAL INFECTION
  12. PREDNISOLONE. [Suspect]
     Active Substance: PREDNISOLONE
     Indication: IMMUNOSUPPRESSANT DRUG THERAPY
     Dosage: 15 MG/DAY, 50 MG/D-0.6 MG/KG ON POSTOPERATIVE DAY FOLLOWED BY TAPERING
     Route: 065
  13. PREDNISOLONE. [Suspect]
     Active Substance: PREDNISOLONE
     Dosage: 15 MG/DAY, 50 MG/D-0.6 MG/KG ON POSTOPERATIVE DAY FOLLOWED BY TAPERING
     Route: 065
  14. CEFTAZIDIME/AVIBACTAM [Concomitant]
     Active Substance: AVIBACTAM SODIUM\CEFTAZIDIME
     Indication: ENTEROCOCCAL INFECTION
  15. CIPROFLOXACIN. [Concomitant]
     Active Substance: CIPROFLOXACIN
     Indication: ENTEROCOCCAL INFECTION
  16. CEFTAZIDIME/AVIBACTAM [Concomitant]
     Active Substance: AVIBACTAM SODIUM\CEFTAZIDIME
     Indication: STAPHYLOCOCCAL INFECTION
  17. GENTAMICIN. [Concomitant]
     Active Substance: GENTAMICIN
     Indication: ENTEROCOCCAL INFECTION
  18. PREDNISOLONE. [Suspect]
     Active Substance: PREDNISOLONE
     Dosage: FOLLOWED BY TAPERING (ON TAPERED DOSE)
     Route: 065
  19. PIPERACILLIN/TAZOBACTAM [Concomitant]
     Active Substance: PIPERACILLIN SODIUM\TAZOBACTAM SODIUM
     Indication: STAPHYLOCOCCAL INFECTION
  20. LIPOSOMAL AMPHOTERICIN B [Concomitant]
     Active Substance: AMPHOTERICIN B
     Indication: PROPHYLAXIS
     Route: 055
  21. CIPROFLOXACIN. [Concomitant]
     Active Substance: CIPROFLOXACIN
     Indication: STAPHYLOCOCCAL INFECTION
  22. MEROPENEM. [Concomitant]
     Active Substance: MEROPENEM
     Indication: ENTEROCOCCAL INFECTION
  23. GENTAMICIN. [Concomitant]
     Active Substance: GENTAMICIN
     Indication: STAPHYLOCOCCAL INFECTION
  24. SULFAMETROLE/TRIMETHOPRIM [Concomitant]
     Indication: ENTEROCOCCAL INFECTION
  25. TEICOPLANIN [Concomitant]
     Active Substance: TEICOPLANIN
     Indication: ENTEROCOCCAL INFECTION
  26. CEFEPIME [Concomitant]
     Active Substance: CEFEPIME HYDROCHLORIDE
     Indication: STAPHYLOCOCCAL INFECTION
  27. FLUCONAZOLE. [Concomitant]
     Active Substance: FLUCONAZOLE
     Indication: PROPHYLAXIS
     Route: 051
  28. LINEZOLID. [Concomitant]
     Active Substance: LINEZOLID
     Indication: STAPHYLOCOCCAL INFECTION

REACTIONS (4)
  - Systemic mycosis [Fatal]
  - Wound dehiscence [Not Recovered/Not Resolved]
  - Purulent discharge [Not Recovered/Not Resolved]
  - Neutropenia [Unknown]
